FAERS Safety Report 4423855-3 (Version None)
Quarter: 2004Q3

REPORT INFORMATION
  Report Type: 
  Country: None (occurrence: None)
  Receive Date: 20040714
  Receipt Date: 20030918
  Transmission Date: 20050211
  Serious: Yes (Death)
  Sender: FDA-Public Use
  Company Number: 200318283US

PATIENT
  Age: 59 Year
  Sex: Female

DRUGS (4)
  1. TAXOTERE [Suspect]
     Indication: OVARIAN CANCER
  2. TAMOXIFEN CITRATE [Concomitant]
  3. TOPOTECAN [Concomitant]
  4. IMATINIB MESILATE (GLEEVEC) [Concomitant]

REACTIONS (1)
  - OVARIAN CANCER [None]
